FAERS Safety Report 7688664-0 (Version None)
Quarter: 2011Q3

REPORT INFORMATION
  Report Type: 
  Country: None (occurrence: None)
  Receive Date: 20110817
  Receipt Date: 20110802
  Transmission Date: 20111222
  Serious: Yes (Hospitalization)
  Sender: FDA-Public Use
  Company Number: US-GLAXOSMITHKLINE-A0863794A

PATIENT
  Age: 62 Year
  Sex: Male
  Weight: 95 kg

DRUGS (2)
  1. AVANDIA [Suspect]
     Indication: DIABETES MELLITUS
     Dosage: 8MG UNKNOWN
     Route: 048
     Dates: start: 19991103, end: 20040120
  2. AVANDARYL [Suspect]
     Indication: TYPE 2 DIABETES MELLITUS
     Route: 048
     Dates: end: 20090201

REACTIONS (4)
  - CARDIAC FAILURE CONGESTIVE [None]
  - ISCHAEMIC CARDIOMYOPATHY [None]
  - MYOCARDIAL INFARCTION [None]
  - CORONARY ARTERY DISEASE [None]
